FAERS Safety Report 11024313 (Version 3)
Quarter: 2015Q2

REPORT INFORMATION
  Report Type: Spontaneous
  Country: JP (occurrence: JP)
  Receive Date: 20150414
  Receipt Date: 20150616
  Transmission Date: 20150821
  Serious: Yes (Hospitalization, Other)
  Sender: FDA-Public Use
  Company Number: JP-AMGEN-JPNSP2015035751

PATIENT
  Age: 64 Year
  Sex: Male
  Weight: 55 kg

DRUGS (17)
  1. 5-FU                               /00098801/ [Concomitant]
     Active Substance: FLUOROURACIL
     Dosage: 4000 MG, Q2WEEKS
     Route: 041
     Dates: start: 20140204, end: 20150106
  2. ALOXI [Concomitant]
     Active Substance: PALONOSETRON HYDROCHLORIDE
     Dosage: 0.75 MG, Q2WEEKS
     Route: 041
  3. TOPOTECIN [Concomitant]
     Active Substance: IRINOTECAN HYDROCHLORIDE
     Indication: RECTAL CANCER
     Dosage: UNK UNK, Q2WEEKS
     Route: 041
     Dates: start: 20130507, end: 20140114
  4. TOPOTECIN [Concomitant]
     Active Substance: IRINOTECAN HYDROCHLORIDE
     Dosage: 240 MG, Q2WEEKS
     Route: 041
     Dates: start: 20150217
  5. 5-FU                               /00098801/ [Concomitant]
     Active Substance: FLUOROURACIL
     Dosage: UNK UNK, Q2WK
     Route: 040
     Dates: start: 20150217
  6. ISOVORIN                           /06682103/ [Concomitant]
     Active Substance: LEUCOVORIN CALCIUM
     Indication: METASTASES TO LIVER
     Dosage: 300 MG, Q2WEEKS
     Route: 041
     Dates: start: 20140204, end: 20150106
  7. VECTIBIX [Suspect]
     Active Substance: PANITUMUMAB
     Indication: RECTAL CANCER
     Dosage: 336 MG, Q2WEEKS
     Route: 041
     Dates: start: 20140204, end: 20150106
  8. 5-FU                               /00098801/ [Concomitant]
     Active Substance: FLUOROURACIL
     Dosage: 4000 MG, Q2WEEKS
     Route: 041
     Dates: start: 20150217
  9. ISOVORIN                           /06682103/ [Concomitant]
     Active Substance: LEUCOVORIN CALCIUM
     Dosage: 300 MG, Q2WEEKS
     Route: 041
     Dates: start: 20150217
  10. TOPOTECIN [Concomitant]
     Active Substance: IRINOTECAN HYDROCHLORIDE
     Indication: METASTASES TO LIVER
     Dosage: 240 MG, Q2WEEKS
     Route: 041
     Dates: start: 20140204, end: 20150106
  11. HEPARIN [Concomitant]
     Active Substance: HEPARIN SODIUM
     Dosage: 5000 IU, Q2WEEKS
     Route: 041
  12. 5-FU                               /00098801/ [Concomitant]
     Active Substance: FLUOROURACIL
     Indication: METASTASES TO LIVER
     Dosage: UNK UNK, Q2WK
     Route: 040
     Dates: start: 20140204, end: 20150106
  13. ISOVORIN                           /06682103/ [Concomitant]
     Active Substance: LEUCOVORIN CALCIUM
     Indication: RECTAL CANCER
     Dosage: UNK, Q2WEEKS
     Route: 041
     Dates: start: 20120925, end: 20140114
  14. VECTIBIX [Suspect]
     Active Substance: PANITUMUMAB
     Indication: METASTASES TO LIVER
     Dosage: 336 MG, Q2WEEKS
     Route: 041
     Dates: start: 20150217
  15. 5-FU                               /00098801/ [Concomitant]
     Active Substance: FLUOROURACIL
     Indication: RECTAL CANCER
     Dosage: UNK UNK, Q2WEEKS
     Route: 042
     Dates: start: 20120925, end: 20140114
  16. DECADRON [Concomitant]
     Active Substance: DEXAMETHASONE
     Dosage: 6.6 MG, Q2WEEKS
     Route: 041
  17. BUSCOPAN [Concomitant]
     Active Substance: BUTYLSCOPOLAMINE BROMIDE
     Dosage: 20 MG, Q2WEEKS
     Route: 041

REACTIONS (2)
  - Lip and/or oral cavity cancer [Recovered/Resolved]
  - Dermatitis acneiform [Unknown]

NARRATIVE: CASE EVENT DATE: 20140218
